FAERS Safety Report 6603498-3 (Version None)
Quarter: 2010Q1

REPORT INFORMATION
  Report Type: 
  Country: None (occurrence: None)
  Receive Date: 20100226
  Receipt Date: 20090831
  Transmission Date: 20100710
  Serious: No
  Sender: FDA-Public Use
  Company Number: A0799767A

PATIENT
  Age: 59 Year
  Sex: Male
  Weight: 82.7 kg

DRUGS (3)
  1. VALTREX [Suspect]
     Indication: AUTONOMIC NEUROPATHY
     Dosage: 1G PER DAY
     Route: 048
     Dates: start: 19980101
  2. CYMBALTA [Concomitant]
  3. CLONIDINE [Concomitant]

REACTIONS (2)
  - GASTROINTESTINAL DISORDER [None]
  - NAUSEA [None]
